FAERS Safety Report 7594203-5 (Version None)
Quarter: 2011Q3

REPORT INFORMATION
  Report Type: 
  Country: None (occurrence: None)
  Receive Date: 20110706
  Receipt Date: 20110627
  Transmission Date: 20111222
  Serious: Yes (Other)
  Sender: FDA-Public Use
  Company Number: FR-ASTRAZENECA-2010SE38033

PATIENT
  Age: 73 Year
  Sex: Male
  Weight: 69 kg

DRUGS (11)
  1. VITAMIN B-12 [Concomitant]
     Indication: PERNICIOUS ANAEMIA
  2. SILYBUM MARIANUM [Concomitant]
  3. ATORVASTATIN CALCIUM [Concomitant]
  4. OSCILLOCOCCINUM [Concomitant]
  5. DICLOFENAC SODIUM [Concomitant]
  6. ASPIRIN [Concomitant]
  7. ACETAMINOPHEN [Concomitant]
  8. TEMAZEPAM [Concomitant]
  9. FENOFIBRATE [Concomitant]
  10. CRESTOR [Suspect]
     Indication: HYPERCHOLESTEROLAEMIA
     Route: 048
     Dates: start: 20091101, end: 20100401
  11. BAKOL FORT [Concomitant]

REACTIONS (4)
  - FATIGUE [None]
  - MUSCLE RUPTURE [None]
  - TENDON RUPTURE [None]
  - MYALGIA [None]
